FAERS Safety Report 8023030-X (Version None)
Quarter: 2012Q1

REPORT INFORMATION
  Report Type: 
  Country: None (occurrence: None)
  Receive Date: 20120104
  Receipt Date: 20111227
  Transmission Date: 20120608
  Serious: Yes (Hospitalization, Other)
  Sender: FDA-Public Use
  Company Number: US-ASTRAZENECA-2011SE06679

PATIENT
  Age: 51 Year
  Sex: Female

DRUGS (6)
  1. PERCOCET [Suspect]
  2. SEROQUEL [Suspect]
     Route: 048
  3. SYMBICORT [Suspect]
     Route: 055
  4. OXYCODONE HCL [Suspect]
  5. XANAX [Suspect]
  6. AMBIEN [Suspect]

REACTIONS (10)
  - CHRONIC OBSTRUCTIVE PULMONARY DISEASE [None]
  - PULMONARY EMBOLISM [None]
  - SOMNOLENCE [None]
  - ATELECTASIS [None]
  - HYPOXIA [None]
  - PNEUMONIA [None]
  - MENTAL DISORDER [None]
  - LUNG INFILTRATION [None]
  - CONVULSION [None]
  - PAIN [None]
